FAERS Safety Report 5591364-4 (Version None)
Quarter: 2008Q1

REPORT INFORMATION
  Report Type: 
  Country: None (occurrence: None)
  Receive Date: 20080110
  Receipt Date: 20080110
  Transmission Date: 20080703
  Serious: Yes (Other)
  Sender: FDA-Public Use
  Company Number: None

PATIENT
  Age: 87 Year
  Sex: Female
  Weight: 56 kg

DRUGS (17)
  1. HEPARIN [Suspect]
     Indication: INTRAVENOUS CATHETER MANAGEMENT
     Dosage: 10,000 UNITS   3 TIMES WEEKLY  IV
     Route: 042
  2. AMLODIPINE [Concomitant]
  3. CEFAZOLIN [Concomitant]
  4. CLONIDINE [Concomitant]
  5. COLCHICINE [Concomitant]
  6. EPOETIN ALPHA [Concomitant]
  7. HYDRALAZINE [Concomitant]
  8. IRON SUCROSE [Concomitant]
  9. LEVOTHYROXINE SODIUM [Concomitant]
  10. METOPROLOL TARTRATE [Concomitant]
  11. MINOXIDIL [Concomitant]
  12. POLYETHYLENE GLYCOL [Concomitant]
  13. PREDNISONE [Concomitant]
  14. ROPIRINOLE [Concomitant]
  15. SEVELAMER [Concomitant]
  16. TELMISARTAN [Concomitant]
  17. NEPHROVITE [Concomitant]

REACTIONS (1)
  - PLATELET COUNT DECREASED [None]
